FAERS Safety Report 9707195 (Version 1)
Quarter: 2013Q4

REPORT INFORMATION
  Report Type: Report from Study
  Country: CA (occurrence: CA)
  Receive Date: 20131125
  Receipt Date: 20131125
  Transmission Date: 20140711
  Serious: Yes (Other)
  Sender: FDA-Public Use
  Company Number: CA-JNJFOC-20131110617

PATIENT
  Age: 17 Year
  Sex: Female
  Weight: 54.3 kg

DRUGS (4)
  1. REMICADE [Suspect]
     Indication: CROHN^S DISEASE
     Route: 042
     Dates: start: 201303
  2. BUDESONIDE [Concomitant]
     Dosage: STARTED AS CHILD
     Route: 045
  3. BENADRYL [Concomitant]
     Indication: MULTIPLE ALLERGIES
     Dosage: 2 PINK TABS EVERY MORNING (AM)
     Route: 048
  4. VENTOLIN [Concomitant]
     Route: 065

REACTIONS (1)
  - Psoriasis [Not Recovered/Not Resolved]
